FAERS Safety Report 12855865 (Version 1)
Quarter: 2016Q4

REPORT INFORMATION
  Report Type: Spontaneous
  Country: RU (occurrence: None)
  Receive Date: 20161014
  Receipt Date: 20161014
  Transmission Date: 20170207
  Serious: No
  Sender: FDA-Public Use
  Company Number: RU2015K6087SPO

PATIENT
  Sex: Female

DRUGS (2)
  1. ENAP (ENALAPRIL) TABLET, 2.5 MG [Suspect]
     Active Substance: ENALAPRIL
     Indication: HYPERTENSION
     Route: 048
     Dates: end: 20150926
  2. VERAPAMIL [Concomitant]
     Active Substance: VERAPAMIL HYDROCHLORIDE

REACTIONS (3)
  - Drug ineffective [None]
  - Blood pressure increased [None]
  - Suspected counterfeit product [None]

NARRATIVE: CASE EVENT DATE: 20150926
